FAERS Safety Report 5226578-6 (Version None)
Quarter: 2007Q1

REPORT INFORMATION
  Report Type: 
  Country: None (occurrence: None)
  Receive Date: 20070201
  Receipt Date: 20070131
  Transmission Date: 20070707
  Serious: Yes (Death)
  Sender: FDA-Public Use
  Company Number: US-ROXANE LABORATORIES, INC-2007-BP-01578RO

PATIENT
  Sex: Female

DRUGS (10)
  1. METHADONE HCL [Suspect]
     Indication: PAIN
     Dosage: 15 MG, QID
     Route: 048
     Dates: start: 20050216, end: 20060413
  2. METHADONE HCL [Suspect]
     Dosage: 20 MG, QID
     Route: 048
     Dates: start: 20060414, end: 20060419
  3. VICODIN [Suspect]
     Indication: BREAKTHROUGH PAIN
     Route: 048
  4. CELEXA [Concomitant]
  5. VALTREX [Concomitant]
  6. REGLAN [Concomitant]
  7. NORFLEX [Concomitant]
  8. VITAMIN B COMPLEX CAP [Concomitant]
  9. SENNA [Concomitant]
  10. GLUCOSAMINE [Concomitant]

REACTIONS (1)
  - MYOCARDITIS [None]
